FAERS Safety Report 9625753 (Version 3)
Quarter: 2013Q4

REPORT INFORMATION
  Report Type: Spontaneous
  Country: DE (occurrence: DE)
  Receive Date: 20131016
  Receipt Date: 20131219
  Transmission Date: 20140711
  Serious: Yes (Other)
  Sender: FDA-Public Use
  Company Number: DE-AMGEN-DEUSP2013038099

PATIENT
  Age: 69 Year
  Sex: Female
  Weight: 71 kg

DRUGS (3)
  1. PROLIA [Suspect]
     Indication: OSTEOPOROSIS
     Dosage: UNK UNK, Q6MO
     Route: 065
     Dates: start: 201212
  2. BUDECORT [Concomitant]
     Indication: CHRONIC OBSTRUCTIVE PULMONARY DISEASE
     Dosage: 2 UNIT, QD
     Dates: start: 201212
  3. L-THYROXIN [Concomitant]
     Indication: AUTOIMMUNE THYROIDITIS
     Dosage: UNK UNK, QD
     Dates: start: 2007

REACTIONS (7)
  - Impaired healing [Unknown]
  - Bone loss [Unknown]
  - Osteonecrosis of jaw [Unknown]
  - Periodontitis [Not Recovered/Not Resolved]
  - Gingival recession [Unknown]
  - Loose tooth [Unknown]
  - Sinus headache [Unknown]
